FAERS Safety Report 9898969 (Version 2)
Quarter: 2014Q1

REPORT INFORMATION
  Report Type: Spontaneous
  Country: US (occurrence: US)
  Receive Date: 20140214
  Receipt Date: 20140221
  Transmission Date: 20141002
  Serious: Yes (Hospitalization)
  Sender: FDA-Public Use
  Company Number: US-GLAXOSMITHKLINE-A1060991A

PATIENT
  Age: 49 Year
  Sex: Female

DRUGS (1)
  1. ARIXTRA [Suspect]
     Indication: ANTICOAGULANT THERAPY
     Dosage: 2.5MG UNKNOWN
     Route: 042
     Dates: start: 20130912

REACTIONS (2)
  - Surgery [Unknown]
  - Investigation [Unknown]
